FAERS Safety Report 9417270 (Version 1)
Quarter: 2013Q3

REPORT INFORMATION
  Report Type: Spontaneous
  Country: US (occurrence: None)
  Receive Date: 20130722
  Receipt Date: 20130722
  Transmission Date: 20140515
  Serious: Yes (Hospitalization)
  Sender: FDA-Public Use
  Company Number: None

PATIENT
  Age: 54 Year
  Sex: Female

DRUGS (1)
  1. CIPROFLOXACIN [Suspect]
     Indication: DIVERTICULITIS
     Route: 048
     Dates: start: 20130710

REACTIONS (14)
  - Muscular weakness [None]
  - Dizziness [None]
  - Headache [None]
  - Pain [None]
  - Hypoaesthesia [None]
  - Burning sensation [None]
  - Paraesthesia [None]
  - Asthenia [None]
  - Pyrexia [None]
  - Tremor [None]
  - Rash [None]
  - Swelling face [None]
  - Swollen tongue [None]
  - Pharyngeal oedema [None]
